FAERS Safety Report 4342653-2 (Version None)
Quarter: 2004Q1

REPORT INFORMATION
  Report Type: 
  Country: None (occurrence: None)
  Receive Date: 20040213
  Receipt Date: 20031105
  Transmission Date: 20041129
  Serious: Yes (Death)
  Sender: FDA-Public Use
  Company Number: 350997

PATIENT
  Sex: Male

DRUGS (1)
  1. PEGASYS [Suspect]
     Dosage: 180 MCG 1 PER WEEK, SUBCUTANEOUS
     Route: 058

REACTIONS (2)
  - NEUTROPHIL COUNT ABNORMAL [None]
  - WHITE BLOOD CELL COUNT DECREASED [None]
